FAERS Safety Report 8170484-4 (Version None)
Quarter: 2012Q1

REPORT INFORMATION
  Report Type: 
  Country: None (occurrence: None)
  Receive Date: 20120104
  Receipt Date: 20111004
  Transmission Date: 20120608
  Serious: No
  Sender: FDA-Public Use
  Company Number: 2011HGS-002468

PATIENT
  Age: 47 Year
  Sex: Male
  Weight: 78.4723 kg

DRUGS (3)
  1. PLAQUENIL (HYDROXYCHLOROQUINE SULFATE)(HYDROXYCHLOROQUINE SULFATE) [Concomitant]
  2. PREDNISONE [Concomitant]
  3. BENLYSTA [Suspect]
     Indication: SYSTEMIC LUPUS ERYTHEMATOSUS
     Dosage: 10 MG/KG,  NTRAVENOUS DRIP
     Route: 041
     Dates: start: 20110803

REACTIONS (5)
  - PRURITUS [None]
  - EAR DISCOMFORT [None]
  - TOOTHACHE [None]
  - OEDEMA PERIPHERAL [None]
  - RASH [None]
